FAERS Safety Report 5224515-1 (Version None)
Quarter: 2007Q1

REPORT INFORMATION
  Report Type: 
  Country: None (occurrence: None)
  Receive Date: 20070130
  Receipt Date: 20070118
  Transmission Date: 20070707
  Serious: Yes (Hospitalization)
  Sender: FDA-Public Use
  Company Number: FR-PFIZER INC-2007005216

PATIENT
  Age: 52 Year
  Sex: Female

DRUGS (5)
  1. LYRICA [Suspect]
     Indication: NEURALGIA
  2. TRAMADOL HYDROCHLORIDE/ACETAMINOPHEN [Concomitant]
  3. METEOSPASMYL [Concomitant]
  4. CELEBREX [Concomitant]
  5. DURAGESIC-100 [Concomitant]

REACTIONS (2)
  - HYPERHIDROSIS [None]
  - PALPITATIONS [None]
